FAERS Safety Report 4284899-8 (Version None)
Quarter: 2004Q1

REPORT INFORMATION
  Report Type: 
  Country: None (occurrence: None)
  Receive Date: 20040121
  Receipt Date: 20021120
  Transmission Date: 20041129
  Serious: Yes (Hospitalization)
  Sender: FDA-Public Use
  Company Number: A03200201386

PATIENT
  Age: 55 Year
  Sex: Male
  Weight: 74.8435 kg

DRUGS (3)
  1. PLAVIX [Suspect]
     Indication: PROPHYLAXIS
     Dosage: 75 MG QD - ORAL
     Route: 048
     Dates: start: 20021028
  2. BENAZEPRIL HCL [Concomitant]
  3. SIMVASTATIN [Concomitant]

REACTIONS (1)
  - HAEMATURIA [None]
